FAERS Safety Report 20941896 (Version 1)
Quarter: 2022Q2

REPORT INFORMATION
  Report Type: Spontaneous
  Country: GR (occurrence: GR)
  Receive Date: 20220610
  Receipt Date: 20220610
  Transmission Date: 20220721
  Serious: Yes (Other)
  Sender: FDA-Public Use
  Company Number: GR-BAYER-2022A055628

PATIENT
  Age: 67 Year
  Sex: Female

DRUGS (2)
  1. XARELTO [Suspect]
     Active Substance: RIVAROXABAN
     Indication: Atrial fibrillation
     Dosage: 20 MG
     Route: 048
     Dates: start: 20220201
  2. FLECAINIDE ACETATE [Concomitant]
     Active Substance: FLECAINIDE ACETATE

REACTIONS (1)
  - Erythema nodosum [Unknown]

NARRATIVE: CASE EVENT DATE: 20220401
